FAERS Safety Report 13669949 (Version 2)
Quarter: 2017Q2

REPORT INFORMATION
  Report Type: Spontaneous
  Country: US (occurrence: US)
  Receive Date: 20170620
  Receipt Date: 20170628
  Transmission Date: 20170830
  Serious: No
  Sender: FDA-Public Use
  Company Number: US-AMGEN-USASP2017091002

PATIENT
  Age: 63 Year
  Sex: Female

DRUGS (24)
  1. FOLGARD [Concomitant]
  2. MIRALAX [Concomitant]
     Active Substance: POLYETHYLENE GLYCOL 3350
  3. CYCLOBENZAPRINE HCL [Concomitant]
     Active Substance: CYCLOBENZAPRINE HYDROCHLORIDE
  4. GLUCOSAMINE CHONDROITIN [Concomitant]
     Active Substance: CHONDROITIN SULFATE (BOVINE)\GLUCOSAMINE HYDROCHLORIDE
  5. MAGNESIUM [Concomitant]
     Active Substance: MAGNESIUM
  6. ZETIA [Concomitant]
     Active Substance: EZETIMIBE
  7. BREO ELLIPTA [Concomitant]
     Active Substance: FLUTICASONE FUROATE\VILANTEROL TRIFENATATE
  8. ESTRADIOL. [Concomitant]
     Active Substance: ESTRADIOL
  9. LYRICA [Concomitant]
     Active Substance: PREGABALIN
  10. CELECOXIB. [Concomitant]
     Active Substance: CELECOXIB
  11. ESTER C [Concomitant]
  12. FISH OIL [Concomitant]
     Active Substance: FISH OIL
  13. TURMERIC [Concomitant]
     Active Substance: HERBALS\TURMERIC
  14. VENLAFAXINE HCL [Concomitant]
     Active Substance: VENLAFAXINE HYDROCHLORIDE
  15. DEXILANT [Concomitant]
     Active Substance: DEXLANSOPRAZOLE
  16. ZYRTEC [Concomitant]
     Active Substance: CETIRIZINE HYDROCHLORIDE
     Dosage: UNK
  17. BIOTIN [Concomitant]
     Active Substance: BIOTIN
  18. COENZYME Q10 [Concomitant]
     Active Substance: UBIDECARENONE
  19. VITAMIN D3 [Concomitant]
     Active Substance: CHOLECALCIFEROL
  20. CALCIUM CARBONATE. [Concomitant]
     Active Substance: CALCIUM CARBONATE
  21. ENBREL [Suspect]
     Active Substance: ETANERCEPT
     Indication: PSORIATIC ARTHROPATHY
     Dosage: 50 MG, QWK
     Route: 058
     Dates: start: 201705
  22. VITAMIN B12 [Concomitant]
     Active Substance: CYANOCOBALAMIN
  23. AZELASTINE [Concomitant]
     Active Substance: AZELASTINE
  24. MONTELUKAST [Concomitant]
     Active Substance: MONTELUKAST SODIUM

REACTIONS (8)
  - Facial pain [Not Recovered/Not Resolved]
  - Glossodynia [Not Recovered/Not Resolved]
  - Pain in extremity [Unknown]
  - Oral pain [Not Recovered/Not Resolved]
  - Weight increased [Unknown]
  - Lip pain [Not Recovered/Not Resolved]
  - Fatigue [Unknown]
  - Dyspepsia [Unknown]

NARRATIVE: CASE EVENT DATE: 2017
